FAERS Safety Report 10185522 (Version 1)
Quarter: 2014Q2

REPORT INFORMATION
  Report Type: Spontaneous
  Country: US (occurrence: None)
  Receive Date: 20140520
  Receipt Date: 20140520
  Transmission Date: 20141212
  Serious: Yes (Hospitalization)
  Sender: FDA-Public Use
  Company Number: None

PATIENT
  Age: 29 Year
  Sex: Male

DRUGS (12)
  1. DAPSONE [Suspect]
     Indication: PROPHYLAXIS
     Route: 048
     Dates: start: 20121112, end: 20121115
  2. ACYCLOVIR [Concomitant]
  3. CASPOFUNGIN [Concomitant]
  4. CYCLOSPORINE [Concomitant]
  5. DRONABINOL [Concomitant]
  6. LANSOPRAZOLE [Concomitant]
  7. LISINOPRIL [Concomitant]
  8. BISOPROLOL [Concomitant]
  9. OXYBUTYNIN [Concomitant]
  10. VANCOMYCIN [Concomitant]
  11. BUDESONIDE [Concomitant]
  12. BECLOMETHASONE [Concomitant]

REACTIONS (3)
  - Mental status changes [None]
  - Renal failure acute [None]
  - Blood methaemoglobin present [None]
